FAERS Safety Report 13596656 (Version 5)
Quarter: 2018Q2

REPORT INFORMATION
  Report Type: Report from Study
  Country: US (occurrence: US)
  Receive Date: 20170531
  Receipt Date: 20180411
  Transmission Date: 20180711
  Serious: No
  Sender: FDA-Public Use
  Company Number: PHEH2017US016191

PATIENT
  Sex: Male

DRUGS (1)
  1. AFINITOR [Suspect]
     Active Substance: EVEROLIMUS
     Indication: ASTROCYTOMA, LOW GRADE
     Dosage: 77.5 MG, QD
     Route: 048
     Dates: start: 20170313

REACTIONS (7)
  - Rift Valley fever [Unknown]
  - Mouth ulceration [Unknown]
  - Cough [Unknown]
  - Infection [Unknown]
  - Therapeutic response unexpected [Unknown]
  - Mouth ulceration [Recovered/Resolved]
  - Weight decreased [Unknown]
